FAERS Safety Report 9379111 (Version 2)
Quarter: 2013Q3

REPORT INFORMATION
  Report Type: Spontaneous
  Country: JP (occurrence: JP)
  Receive Date: 20130702
  Receipt Date: 20130723
  Transmission Date: 20140515
  Serious: Yes (Hospitalization, Other)
  Sender: FDA-Public Use
  Company Number: PHHY2013JP067431

PATIENT
  Age: 70 Year
  Sex: Male
  Weight: 67 kg

DRUGS (7)
  1. TEGRETOL [Suspect]
     Indication: TRIGEMINAL NEURALGIA
     Dosage: 800 MG, DAILY
     Route: 048
  2. TEGRETOL [Suspect]
     Dosage: 600 MG, DAILY
     Route: 048
     Dates: start: 200510
  3. TEGRETOL [Suspect]
     Dosage: 400 MG, DAILY
     Route: 048
     Dates: start: 20120228
  4. BUFERIN [Concomitant]
     Dosage: 81 MG, DAILY
     Route: 048
  5. TICPILONE [Concomitant]
     Dosage: 200 MG, DAILY
     Route: 048
  6. RADEN [Concomitant]
     Dosage: UNK UKN, UNK
     Route: 048
  7. FLIVAS [Concomitant]
     Dosage: UNK UKN, UNK
     Route: 048

REACTIONS (7)
  - Fall [Recovering/Resolving]
  - Dizziness [Recovering/Resolving]
  - Renal failure chronic [Unknown]
  - Renal impairment [Unknown]
  - Disuse syndrome [Unknown]
  - Asthenia [Unknown]
  - Drug level increased [Unknown]
